FAERS Safety Report 15680950 (Version 2)
Quarter: 2019Q1

REPORT INFORMATION
  Report Type: Spontaneous
  Country: US (occurrence: US)
  Receive Date: 20181203
  Receipt Date: 20190327
  Transmission Date: 20190417
  Serious: No
  Sender: FDA-Public Use
  Company Number: US-MYLANLABS-2018M1087529

PATIENT

DRUGS (2)
  1. REVLIMID [Concomitant]
     Active Substance: LENALIDOMIDE
     Indication: CHEMOTHERAPY
     Dosage: UNK
  2. FENTANYL TRANSDERMAL SYSTEM [Suspect]
     Active Substance: FENTANYL
     Indication: PAIN
     Dosage: 100 MICROGRAM, Q3D
     Route: 062
     Dates: start: 20170715

REACTIONS (6)
  - Wrong product administered [Not Recovered/Not Resolved]
  - Product quality issue [Not Recovered/Not Resolved]
  - Product adhesion issue [Not Recovered/Not Resolved]
  - Back injury [Unknown]
  - Fall [Unknown]
  - Pain [Recovered/Resolved]
